FAERS Safety Report 8596115-7 (Version None)
Quarter: 2012Q3

REPORT INFORMATION
  Report Type: 
  Country: None (occurrence: None)
  Receive Date: 20120815
  Receipt Date: 20120801
  Transmission Date: 20120928
  Serious: Yes (Other)
  Sender: FDA-Public Use
  Company Number: IT-MYLANLABS-2012S1015922

PATIENT
  Age: 61 Year
  Sex: Female

DRUGS (1)
  1. RAMIPRIL [Suspect]
     Indication: DIASTOLIC DYSFUNCTION
     Route: 048
     Dates: start: 20120428, end: 20120730

REACTIONS (4)
  - THROAT TIGHTNESS [None]
  - OEDEMA PERIPHERAL [None]
  - COUGH [None]
  - HYPERSENSITIVITY [None]
